FAERS Safety Report 25114763 (Version 1)
Quarter: 2025Q1

REPORT INFORMATION
  Report Type: Spontaneous
  Country: GB (occurrence: GB)
  Receive Date: 20250324
  Receipt Date: 20250324
  Transmission Date: 20250409
  Serious: Yes (Other)
  Sender: ELI LILLY AND COMPANY
  Company Number: None

PATIENT
  Age: 42 Year
  Sex: Female
  Weight: 80 kg

DRUGS (3)
  1. MOUNJARO [Suspect]
     Active Substance: TIRZEPATIDE
     Indication: Weight control
     Route: 065
     Dates: start: 20250311
  2. SERTRALINE [Concomitant]
     Active Substance: SERTRALINE HYDROCHLORIDE
     Indication: Depressed mood
     Dates: start: 20241105
  3. LYMECYCLINE [Concomitant]
     Active Substance: LYMECYCLINE
     Indication: Pigmentation disorder
     Dates: start: 20240607

REACTIONS (8)
  - Hypoaesthesia [Unknown]
  - Feeling cold [Unknown]
  - Tremor [Unknown]
  - Head titubation [Unknown]
  - Chills [Unknown]
  - Paraesthesia [Unknown]
  - Pain in jaw [Unknown]
  - Neck pain [Unknown]

NARRATIVE: CASE EVENT DATE: 20250312
